FAERS Safety Report 9080853 (Version 1)
Quarter: 2013Q1

REPORT INFORMATION
  Report Type: Report from Study
  Country: US (occurrence: US)
  Receive Date: 20130130
  Receipt Date: 20130130
  Transmission Date: 20140127
  Serious: No
  Sender: FDA-Public Use
  Company Number: US-ABBOTT-12P-163-0976331-00

PATIENT
  Age: 53 None
  Sex: Female

DRUGS (10)
  1. HUMIRA [Suspect]
     Indication: RHEUMATOID ARTHRITIS
     Dates: start: 2005
  2. HUMIRA [Suspect]
  3. HUMIRA [Suspect]
  4. METHOTREXATE [Concomitant]
     Indication: RHEUMATOID ARTHRITIS
     Route: 048
  5. DILANTIN [Concomitant]
     Indication: EPILEPSY
     Route: 048
  6. CALCIUM PLUS VITAMIN D [Concomitant]
     Indication: BONE DISORDER
     Dosage: 600/200 MG
     Route: 048
  7. VITAMIN D [Concomitant]
     Indication: BONE DISORDER
     Route: 048
  8. FOLIC ACID [Concomitant]
     Indication: PRODUCT USED FOR UNKNOWN INDICATION
     Route: 048
  9. ZYRTEC [Concomitant]
     Indication: URTICARIA
     Route: 048
  10. ZYRTEC [Concomitant]
     Indication: SEASONAL ALLERGY

REACTIONS (8)
  - Hypothyroidism [Unknown]
  - Injection site pain [Unknown]
  - Injection site pain [Not Recovered/Not Resolved]
  - Lymphadenopathy [Recovered/Resolved]
  - Joint stiffness [Recovered/Resolved]
  - Incorrect dose administered [Recovered/Resolved]
  - Device malfunction [Recovered/Resolved]
  - Discomfort [Recovered/Resolved]
